FAERS Safety Report 19909360 (Version 18)
Quarter: 2025Q2

REPORT INFORMATION
  Report Type: Spontaneous
  Country: IN (occurrence: IN)
  Receive Date: 20211001
  Receipt Date: 20250609
  Transmission Date: 20250717
  Serious: Yes (Other)
  Sender: PFIZER
  Company Number: IN-PFIZER INC-2018406273

PATIENT
  Age: 79 Year
  Sex: Female

DRUGS (11)
  1. PALBOCICLIB [Suspect]
     Active Substance: PALBOCICLIB
     Indication: Breast cancer metastatic
     Route: 048
     Dates: start: 20180905
  2. PALBOCICLIB [Suspect]
     Active Substance: PALBOCICLIB
     Dosage: 125 MG, 1X/DAY
     Route: 048
     Dates: start: 20180911
  3. PALBOCICLIB [Suspect]
     Active Substance: PALBOCICLIB
     Route: 048
     Dates: start: 201910
  4. PALBOCICLIB [Suspect]
     Active Substance: PALBOCICLIB
     Route: 048
     Dates: start: 20200130
  5. PALBOCICLIB [Suspect]
     Active Substance: PALBOCICLIB
     Route: 048
  6. PALBOCICLIB [Suspect]
     Active Substance: PALBOCICLIB
     Indication: Breast cancer metastatic
     Route: 048
  7. LETROZOLE [Concomitant]
     Active Substance: LETROZOLE
     Dosage: 2.5 MG, 1X/DAY
     Route: 048
     Dates: start: 201808
  8. ZOLEDRONIC ACID [Concomitant]
     Active Substance: ZOLEDRONIC ACID
     Dosage: 4 MG IN 100ML NORMAL SALINE ONCE EVERY 3 MONTHS
     Dates: start: 20200129
  9. CALCIUM CARBONATE\CHOLECALCIFEROL [Concomitant]
     Active Substance: CALCIUM CARBONATE\CHOLECALCIFEROL
     Dosage: 500 MG, 1X/DAY
     Route: 048
  10. BENITEC [Concomitant]
     Dosage: 20 MG, 1X/DAY
  11. BENITEC [Concomitant]
     Dosage: 40 MG, 1X/DAY

REACTIONS (10)
  - Myocardial infarction [Unknown]
  - Critical illness [Unknown]
  - Metastases to bone [Unknown]
  - Asthenia [Unknown]
  - Skin hyperpigmentation [Unknown]
  - Depression [Recovered/Resolved]
  - Decreased appetite [Unknown]
  - Blood creatinine abnormal [Unknown]
  - Cardiac disorder [Unknown]
  - Weight decreased [Unknown]

NARRATIVE: CASE EVENT DATE: 20210822
